FAERS Safety Report 22073380 (Version 3)
Quarter: 2023Q1

REPORT INFORMATION
  Report Type: Spontaneous
  Country: US (occurrence: US)
  Receive Date: 20230308
  Receipt Date: 20230330
  Transmission Date: 20230417
  Serious: Yes (Hospitalization, Other)
  Sender: FDA-Public Use
  Company Number: US-AUROBINDO-AUR-APL-2023-010841

PATIENT
  Age: 69 Year
  Sex: Female

DRUGS (3)
  1. ANASTROZOLE [Suspect]
     Active Substance: ANASTROZOLE
     Indication: Breast cancer
     Dosage: LONG TERM USE
     Route: 065
  2. ANASTROZOLE [Suspect]
     Active Substance: ANASTROZOLE
     Indication: Breast cancer female
  3. PREDNISONE [Suspect]
     Active Substance: PREDNISONE
     Indication: Optic neuritis
     Dosage: 80 MILLIGRAM, ONCE A DAY
     Route: 048

REACTIONS (3)
  - Optic neuritis [Recovering/Resolving]
  - Blindness [Unknown]
  - Drug ineffective [Unknown]
